FAERS Safety Report 5082196-4 (Version None)
Quarter: 2006Q3

REPORT INFORMATION
  Report Type: 
  Country: None (occurrence: None)
  Receive Date: 20060815
  Receipt Date: 20060815
  Transmission Date: 20061208
  Serious: Yes (Hospitalization)
  Sender: FDA-Public Use
  Company Number: None

PATIENT
  Age: 57 Year
  Sex: Male
  Weight: 67.586 kg

DRUGS (17)
  1. METHOTREXATE [Suspect]
     Indication: LEUKAEMIA
     Dosage: 360 MG/7.2 ML ONCE OVER 2H IV
     Route: 042
     Dates: start: 20060728
  2. METHOTREXATE [Suspect]
     Indication: LEUKAEMIA
     Dosage: 1420 MG/24.8 ML ONCE OVER 22H IV
     Route: 042
     Dates: start: 20060728, end: 20060729
  3. SODIUM BICARBONATE [Concomitant]
  4. CHLORHEXIDINE [Concomitant]
  5. ALUMINUM AND MAGNESIUM HYDROXIDE-SIMETHICONE [Concomitant]
  6. ALUMINUM HYDROXIDE [Concomitant]
  7. NYSTATIN [Concomitant]
  8. ACETAMINOPHEN [Concomitant]
  9. DIPHENHYDRAMINE [Concomitant]
  10. PROMETHAZINE [Concomitant]
  11. METOCLOPRAMIDE [Concomitant]
  12. PROCHLORPERAZINE TAB [Concomitant]
  13. MAGNESIUM SULFATE IN D5W [Concomitant]
  14. POTASSIUM CHLORIDE [Concomitant]
  15. CALCIUM GLUCONATE [Concomitant]
  16. POTASSIUM PHOSPHATES [Concomitant]
  17. SODIUM PHOSPHATES [Concomitant]

REACTIONS (2)
  - ALANINE AMINOTRANSFERASE INCREASED [None]
  - ASPARTATE AMINOTRANSFERASE INCREASED [None]
